FAERS Safety Report 9122786 (Version 4)
Quarter: 2013Q2

REPORT INFORMATION
  Report Type: Report from Study
  Country: US (occurrence: US)
  Receive Date: 20130227
  Receipt Date: 20130404
  Transmission Date: 20140414
  Serious: No
  Sender: FDA-Public Use
  Company Number: US-VERTEX PHARMACEUTICALS INC.-2013-002674

PATIENT
  Age: 62 Year
  Sex: Male
  Weight: 102 kg

DRUGS (3)
  1. VX-950 (TELAPREVIR) [Suspect]
     Indication: HEPATITIS C
     Dosage: 750 MG, TID
     Route: 048
     Dates: start: 20130119
  2. PEGASYS [Suspect]
     Indication: HEPATITIS C
     Dosage: 180 ?G, QW
     Route: 058
     Dates: start: 20130119
  3. RIBAVIRIN [Suspect]
     Indication: HEPATITIS C
     Dosage: 400 MG, BID
     Route: 048
     Dates: start: 20130119

REACTIONS (6)
  - Epistaxis [Not Recovered/Not Resolved]
  - Hypersensitivity [Recovered/Resolved]
  - Rash vesicular [Not Recovered/Not Resolved]
  - Urticaria [Recovered/Resolved]
  - Pruritus generalised [Not Recovered/Not Resolved]
  - Rash pruritic [Recovered/Resolved]
